FAERS Safety Report 10084072 (Version 3)
Quarter: 2014Q2

REPORT INFORMATION
  Report Type: Spontaneous
  Country: IT (occurrence: None)
  Receive Date: 20140415
  Receipt Date: 20140423
  Transmission Date: 20141212
  Serious: Yes (Other)
  Sender: FDA-Public Use
  Company Number: AUR-APL-2014-04587

PATIENT
  Age: 36 Year
  Sex: Male
  Weight: 105 kg

DRUGS (3)
  1. RAMIPRIL (RAMIPRIL) [Suspect]
     Indication: HYPERTENSION
     Route: 048
     Dates: start: 20140224, end: 20140327
  2. ADALAT CRONO (NFEDIPINE) [Concomitant]
  3. ANTRA (OMERAPRAZOLE) [Concomitant]

REACTIONS (1)
  - Hypertensive crisis [None]
